FAERS Safety Report 8316229 (Version 7)
Quarter: 2012Q4

REPORT INFORMATION
  Report Type: Report from Study
  Country: BR (occurrence: BR)
  Receive Date: 20111229
  Receipt Date: 20121214
  Transmission Date: 20130627
  Serious: Yes (Hospitalization, Other)
  Sender: FDA-Public Use
  Company Number: BR-ROCHE-800011

PATIENT
  Age: 54 None
  Sex: Male

DRUGS (23)
  1. RITUXIMAB [Suspect]
     Indication: AMYLOIDOSIS
     Dosage: DOSE, FORM FREQUENCY NOT REPORTED.
     Route: 042
     Dates: start: 20110701, end: 20110715
  2. RITUXIMAB [Suspect]
     Indication: OSTEITIS DEFORMANS
  3. MELPHALAN [Suspect]
     Indication: PRODUCT USED FOR UNKNOWN INDICATION
     Route: 065
  4. ALKERAN [Suspect]
     Indication: PRIMARY AMYLOIDOSIS
     Route: 065
  5. PRATIPRAZOL [Concomitant]
     Route: 065
  6. PARACETAMOL [Concomitant]
     Route: 065
  7. PREDNISONE [Concomitant]
     Route: 065
  8. PREDNISONE [Concomitant]
     Route: 065
  9. CALCIUM CARBONATE [Concomitant]
     Route: 065
  10. VITAMIN D [Concomitant]
     Route: 065
  11. DOMPERIDONE [Concomitant]
     Route: 065
  12. DIMETHICONE [Concomitant]
     Route: 065
  13. CLAVULIN [Concomitant]
     Route: 065
  14. PURAN T4 [Concomitant]
     Route: 065
  15. THALIDOMIDE [Concomitant]
     Route: 065
  16. DIMORF [Concomitant]
     Route: 065
  17. INSULIN HUMAN [Concomitant]
  18. NPH INSULIN [Concomitant]
     Route: 065
  19. ALKERAN [Concomitant]
     Route: 065
  20. DRAMIN [Concomitant]
  21. TALIDOMIDE [Concomitant]
     Route: 065
  22. CAPTOPRIL [Concomitant]
     Route: 065
  23. OMEPRAZOLE [Concomitant]
     Route: 065

REACTIONS (20)
  - Syncope [Not Recovered/Not Resolved]
  - Dysphagia [Not Recovered/Not Resolved]
  - Appetite disorder [Not Recovered/Not Resolved]
  - Nausea [Not Recovered/Not Resolved]
  - Haemorrhage subcutaneous [Recovering/Resolving]
  - Abasia [Recovering/Resolving]
  - Influenza [Unknown]
  - Pneumonia [Recovered/Resolved]
  - Pyrexia [Unknown]
  - Pain [Unknown]
  - Neutropenia [Recovered/Resolved]
  - Respiratory tract infection [Recovered/Resolved]
  - Drug ineffective [Unknown]
  - Back pain [Not Recovered/Not Resolved]
  - Clavicle fracture [Recovered/Resolved]
  - Immobile [Not Recovered/Not Resolved]
  - Weight decreased [Unknown]
  - Back pain [Recovered/Resolved]
  - Osteoporosis [Recovered/Resolved]
  - Rib fracture [Recovered/Resolved]
